FAERS Safety Report 6439027-7 (Version None)
Quarter: 2009Q4

REPORT INFORMATION
  Report Type: 
  Country: None (occurrence: None)
  Receive Date: 20091113
  Receipt Date: 20091109
  Transmission Date: 20100525
  Serious: Yes (Hospitalization)
  Sender: FDA-Public Use
  Company Number: FR-ROCHE-667631

PATIENT
  Sex: Male
  Weight: 35 kg

DRUGS (7)
  1. RIVOTRIL [Suspect]
     Dosage: DRUG REPORTED: RIVOTRIL 1MG/1ML
     Route: 065
     Dates: start: 20090819, end: 20090819
  2. DEPAKENE [Suspect]
     Indication: CONVULSION
     Route: 065
     Dates: start: 20090814, end: 20090819
  3. TRIFLUCAN [Concomitant]
     Indication: OESOPHAGITIS
  4. ISOPTIN [Concomitant]
  5. DILTIAZEM HCL [Concomitant]
  6. AUGMENTIN [Concomitant]
  7. AMOXICILLIN [Concomitant]
     Dates: start: 20090721

REACTIONS (1)
  - COMA [None]
